FAERS Safety Report 6588910-0 (Version None)
Quarter: 2010Q1

REPORT INFORMATION
  Report Type: 
  Country: None (occurrence: None)
  Receive Date: 20100218
  Receipt Date: 20100208
  Transmission Date: 20100710
  Serious: Yes (Hospitalization, Disabling)
  Sender: FDA-Public Use
  Company Number: US-BRISTOL-MYERS SQUIBB COMPANY-14854269

PATIENT
  Sex: Male

DRUGS (11)
  1. EFAVIRENZ [Suspect]
     Route: 048
  2. RALTEGRAVIR [Suspect]
     Dosage: TABS RALTEGRAVIR POTASSIUM
     Route: 048
  3. RITONAVIR [Suspect]
     Dosage: FORMULATION=CAP
     Route: 048
  4. EMTRICITABINE AND TENOFOVIR DISOPROXIL FUMARATE [Suspect]
     Route: 048
  5. DARUNAVIR [Suspect]
     Route: 048
  6. ENFUVIRTIDE [Suspect]
     Route: 058
  7. PENTAMIDINE ISETHIONATE [Concomitant]
  8. SENNOSIDES [Concomitant]
  9. BROTIZOLAM [Concomitant]
  10. RISPERIDONE [Concomitant]
  11. VALPROATE SODIUM [Concomitant]

REACTIONS (2)
  - AIDS ENCEPHALOPATHY [None]
  - SUBDURAL HAEMATOMA [None]
